FAERS Safety Report 9172103 (Version 1)
Quarter: 2013Q1

REPORT INFORMATION
  Report Type: Other
  Country: US (occurrence: US)
  Receive Date: 20130319
  Receipt Date: 20130319
  Transmission Date: 20140127
  Serious: Yes (Death)
  Sender: FDA-Public Use
  Company Number: US-SHIRE-ALL1-2013-01419

PATIENT
  Sex: Male

DRUGS (1)
  1. FOSRENOL [Suspect]
     Indication: PRODUCT USED FOR UNKNOWN INDICATION
     Dosage: 1000 MG, UNKNOWN (8 PER DAY)
     Route: 048
     Dates: start: 200807

REACTIONS (3)
  - Therapy cessation [Fatal]
  - Renal failure [Fatal]
  - Prescribed overdose [Unknown]
